FAERS Safety Report 13829441 (Version 2)
Quarter: 2017Q4

REPORT INFORMATION
  Report Type: Spontaneous
  Country: JP (occurrence: JP)
  Receive Date: 20170803
  Receipt Date: 20171010
  Transmission Date: 20180320
  Serious: Yes (Other)
  Sender: FDA-Public Use
  Company Number: JP-GLAXOSMITHKLINE-JP2017JPN097120

PATIENT
  Sex: Female

DRUGS (2)
  1. ANORO ELLIPTA [Suspect]
     Active Substance: UMECLIDINIUM BROMIDE\VILANTEROL TRIFENATATE
     Indication: CHRONIC OBSTRUCTIVE PULMONARY DISEASE
     Dosage: UNK UNK, QD
     Route: 055
  2. ANORO ELLIPTA [Suspect]
     Active Substance: UMECLIDINIUM BROMIDE\VILANTEROL TRIFENATATE
     Indication: EMPHYSEMA

REACTIONS (4)
  - Nausea [Recovered/Resolved]
  - Feeling abnormal [Recovered/Resolved]
  - Dry mouth [Unknown]
  - Palpitations [Recovered/Resolved]

NARRATIVE: CASE EVENT DATE: 20170524
